FAERS Safety Report 10431117 (Version 1)
Quarter: 2014Q3

REPORT INFORMATION
  Report Type: Spontaneous
  Country: FR (occurrence: FR)
  Receive Date: 20140904
  Receipt Date: 20140904
  Transmission Date: 20150326
  Serious: Yes (Other)
  Sender: FDA-Public Use
  Company Number: PHHY2014FR108693

PATIENT
  Age: 85 Year
  Sex: Male

DRUGS (2)
  1. ONBREZ [Suspect]
     Active Substance: INDACATEROL
     Indication: EMPHYSEMA
     Dosage: UNK UKN, UNK
     Route: 055
     Dates: start: 20140616, end: 20140703
  2. SEEBRI BREEZHALER [Suspect]
     Active Substance: GLYCOPYRRONIUM
     Indication: EMPHYSEMA
     Dosage: UNK UKN, UNK
     Route: 055
     Dates: start: 20140616, end: 20140703

REACTIONS (3)
  - Erythema [Unknown]
  - Dermatitis exfoliative [Recovering/Resolving]
  - Skin lesion [Not Recovered/Not Resolved]

NARRATIVE: CASE EVENT DATE: 201406
